FAERS Safety Report 5035699-2 (Version None)
Quarter: 2006Q2

REPORT INFORMATION
  Report Type: 
  Country: None (occurrence: None)
  Receive Date: 20060622
  Receipt Date: 20060606
  Transmission Date: 20061013
  Serious: Yes (Other)
  Sender: FDA-Public Use
  Company Number: 226446

PATIENT
  Age: 64 Year
  Sex: Female
  Weight: 48 kg

DRUGS (3)
  1. HERCEPTIN [Suspect]
     Dosage: 100 MG, SINGLE, IV DRIP
     Route: 041
     Dates: start: 20040326
  2. NAVELBINE [Suspect]
     Dosage: 40 MG, SINGLE, IV BOLUS
     Route: 040
     Dates: start: 20040326
  3. PASPERTIN (METOCLOPRAMIDE HYDROCHLORIDE) [Concomitant]

REACTIONS (5)
  - IMPLANT SITE EXTRAVASATION [None]
  - INJECTION SITE ERYTHEMA [None]
  - INJECTION SITE INDURATION [None]
  - INJECTION SITE PAIN [None]
  - PARAESTHESIA [None]
